FAERS Safety Report 4271491-4 (Version None)
Quarter: 2004Q1

REPORT INFORMATION
  Report Type: 
  Country: None (occurrence: None)
  Receive Date: 20040113
  Receipt Date: 20040105
  Transmission Date: 20041129
  Serious: Yes (Death, Hospitalization, Other)
  Sender: FDA-Public Use
  Company Number: 2002US005059

PATIENT
  Age: 28 Year
  Sex: Male

DRUGS (2)
  1. PROTOPIC [Suspect]
     Indication: PSORIASIS
     Dosage: BID, TOPICAL
     Route: 061
     Dates: start: 20020301, end: 20020505
  2. PROTOPIC [Suspect]
     Indication: SEBORRHOEIC DERMATITIS
     Dosage: BID, TOPICAL
     Route: 061
     Dates: start: 20020301, end: 20020505

REACTIONS (6)
  - APPLICATION SITE REACTION [None]
  - CHEST PAIN [None]
  - DYSPNOEA [None]
  - HAEMOPTYSIS [None]
  - IMMUNOSUPPRESSION [None]
  - KAPOSI'S SARCOMA [None]
